FAERS Safety Report 5902470-6 (Version None)
Quarter: 2008Q3

REPORT INFORMATION
  Report Type: 
  Country: None (occurrence: None)
  Receive Date: 20080925
  Receipt Date: 20080916
  Transmission Date: 20090109
  Serious: Yes (Hospitalization)
  Sender: FDA-Public Use
  Company Number: 2007BI024261

PATIENT
  Age: 42 Year
  Sex: Female
  Weight: 63.5036 kg

DRUGS (7)
  1. TYSABRI [Suspect]
     Indication: MULTIPLE SCLEROSIS
     Dosage: 300 MG;QM;IV
     Route: 042
     Dates: start: 20070801, end: 20070926
  2. TYSABRI [Suspect]
     Indication: MULTIPLE SCLEROSIS
     Dosage: 300 MG;QM;IV
     Route: 042
     Dates: start: 20071122
  3. NEOSPORIN [Concomitant]
  4. SODIUM CHLORIDE 0.9% [Concomitant]
  5. DETROL [Concomitant]
  6. POTASSIUM CHLORIDE [Concomitant]
  7. LACTULOSE [Concomitant]

REACTIONS (5)
  - ANKLE FRACTURE [None]
  - BACK PAIN [None]
  - FALL [None]
  - JOINT STIFFNESS [None]
  - OEDEMA PERIPHERAL [None]
